FAERS Safety Report 24145249 (Version 2)
Quarter: 2024Q3

REPORT INFORMATION
  Report Type: Spontaneous
  Country: JP (occurrence: JP)
  Receive Date: 20240729
  Receipt Date: 20240910
  Transmission Date: 20241017
  Serious: Yes (Hospitalization, Other)
  Sender: GLAXOSMITHKLINE
  Company Number: JP-GLAXOSMITHKLINE-JP2024JPN092446

PATIENT

DRUGS (35)
  1. DAPRODUSTAT [Suspect]
     Active Substance: DAPRODUSTAT
     Indication: Nephrogenic anaemia
     Dosage: UNK
     Dates: start: 20230812
  2. ZOLPIDEM TARTRATE [Concomitant]
     Active Substance: ZOLPIDEM TARTRATE
     Dosage: UNK
  3. VONOPRAZAN FUMARATE [Concomitant]
     Active Substance: VONOPRAZAN FUMARATE
     Dosage: UNK
  4. MONTELUKAST [Concomitant]
     Active Substance: MONTELUKAST SODIUM
     Dosage: UNK
  5. CALTAN [Concomitant]
     Active Substance: CALCIUM CARBONATE
     Dosage: UNK
  6. LANTHANUM CARBONATE [Concomitant]
     Active Substance: LANTHANUM CARBONATE
     Dosage: UNK
  7. FERRIC CITRATE ANHYDROUS [Concomitant]
     Active Substance: FERRIC CITRATE ANHYDROUS
     Dosage: UNK
  8. HERBALS [Concomitant]
     Active Substance: HERBALS
     Dosage: UNK
  9. ASPIRIN [Concomitant]
     Active Substance: ASPIRIN
     Dosage: UNK
  10. POLAPREZINC [Concomitant]
     Active Substance: POLAPREZINC
     Dosage: UNK
  11. DROXIDOPA [Concomitant]
     Active Substance: DROXIDOPA
     Dosage: UNK
  12. AMEZINIUM METILSULFATE [Concomitant]
     Active Substance: AMEZINIUM METILSULFATE
     Dosage: UNK
  13. ACETAMINOPHEN\CAFFEINE\PROMETHAZINE\SALICYLAMIDE [Concomitant]
     Active Substance: ACETAMINOPHEN\CAFFEINE\PROMETHAZINE\SALICYLAMIDE
     Dosage: UNK
  14. TENAPANOR HYDROCHLORIDE [Concomitant]
     Active Substance: TENAPANOR HYDROCHLORIDE
     Dosage: UNK
  15. NIFEDIPINE [Concomitant]
     Active Substance: NIFEDIPINE
     Dosage: UNK
  16. LAGNOS NF [Concomitant]
     Dosage: UNK
  17. CALONAL [Concomitant]
     Active Substance: ACETAMINOPHEN
     Dosage: UNK
  18. METHYLCOBALAMIN [Concomitant]
     Active Substance: METHYLCOBALAMIN
     Dosage: UNK
  19. MIROGABALIN BESYLATE [Concomitant]
     Active Substance: MIROGABALIN BESYLATE
     Dosage: UNK
  20. ELOBIXIBAT [Concomitant]
     Active Substance: ELOBIXIBAT
     Dosage: UNK
  21. LINZESS [Concomitant]
     Active Substance: LINACLOTIDE
     Dosage: UNK
  22. MIROGABALIN BESYLATE [Concomitant]
     Active Substance: MIROGABALIN BESYLATE
     Dosage: UNK
  23. SODIUM FERROUS CITRATE [Concomitant]
     Active Substance: SODIUM FERROUS CITRATE
     Dosage: UNK
  24. ETIZOLAM [Concomitant]
     Active Substance: ETIZOLAM
     Dosage: UNK
  25. EPINASTINE HYDROCHLORIDE [Concomitant]
     Active Substance: EPINASTINE HYDROCHLORIDE
     Dosage: UNK
  26. HEPARINOID [Concomitant]
     Dosage: UNK
  27. Sp [Concomitant]
     Dosage: UNK
  28. UREA [Concomitant]
     Active Substance: UREA
     Dosage: UNK
  29. LOXOPROFEN SODIUM [Concomitant]
     Active Substance: LOXOPROFEN SODIUM
     Dosage: UNK
  30. RINDERON VG [Concomitant]
     Active Substance: BETAMETHASONE VALERATE\GENTAMICIN SULFATE
     Dosage: UNK
  31. PETROLATUM [Concomitant]
     Active Substance: PETROLATUM
     Dosage: UNK
  32. AMLODIPINE [Concomitant]
     Active Substance: AMLODIPINE BESYLATE
     Dosage: UNK
  33. P TOL [Concomitant]
     Dosage: UNK
  34. LEVOTHYROXINE SODIUM [Concomitant]
     Active Substance: LEVOTHYROXINE SODIUM
     Dosage: UNK
  35. HERBALS [Concomitant]
     Active Substance: HERBALS
     Dosage: UNK

REACTIONS (9)
  - Retinal haemorrhage [Recovering/Resolving]
  - Retinopathy [Unknown]
  - Spinal cord injury [Unknown]
  - Cataract [Unknown]
  - Cardiac failure [Unknown]
  - Fall [Unknown]
  - Visual acuity reduced [Unknown]
  - Carpal tunnel syndrome [Unknown]
  - Allergic keratitis [Unknown]

NARRATIVE: CASE EVENT DATE: 20240309
